FAERS Safety Report 6538103-8 (Version None)
Quarter: 2009Q4

REPORT INFORMATION
  Report Type: 
  Country: None (occurrence: None)
  Receive Date: 20091231
  Receipt Date: 20091105
  Transmission Date: 20100525
  Serious: Yes (Other)
  Sender: FDA-Public Use
  Company Number: SPV1-2009-02216

PATIENT
  Sex: Female

DRUGS (2)
  1. INTUNIV [Suspect]
     Indication: DRUG USE FOR UNKNOWN INDICATION
     Dosage: 1X/DAY;QD, ORAL
     Route: 048
     Dates: start: 20090101
  2. ANTIEPILEPTICS [Suspect]
     Indication: CONVULSION

REACTIONS (5)
  - CONVULSION [None]
  - FATIGUE [None]
  - HEADACHE [None]
  - HUNGER [None]
  - OROPHARYNGEAL PAIN [None]
